FAERS Safety Report 9172312 (Version 2)
Quarter: 2018Q4

REPORT INFORMATION
  Report Type: Spontaneous
  Country: US (occurrence: US)
  Receive Date: 20130319
  Receipt Date: 20181109
  Transmission Date: 20190205
  Serious: No
  Sender: FDA-Public Use
  Company Number: US-ASTRAZENECA-2013SE12374

PATIENT
  Age: 521 Month
  Sex: Female
  Weight: 113.4 kg

DRUGS (6)
  1. METFORMIN [Concomitant]
     Active Substance: METFORMIN HYDROCHLORIDE
     Indication: DIABETES MELLITUS
     Dosage: UNK DAILY
     Route: 048
  2. VITAMIN D [Concomitant]
     Active Substance: CHOLECALCIFEROL
     Indication: NUTRITIONAL SUPPLEMENTATION
     Dosage: UNK DAILY
     Route: 048
  3. FISH OIL [Concomitant]
     Active Substance: FISH OIL
     Indication: NUTRITIONAL SUPPLEMENTATION
     Dosage: UNK DAILY
     Route: 048
  4. SYMBICORT [Suspect]
     Active Substance: BUDESONIDE\FORMOTEROL FUMARATE DIHYDRATE
     Indication: ASTHMA
     Dosage: 80/4.5MCG 2 PUFFS 2 TIMES A DAY
     Route: 055
     Dates: start: 2012
  5. LISINOPRIL. [Suspect]
     Active Substance: LISINOPRIL
     Indication: PRODUCT USED FOR UNKNOWN INDICATION
     Route: 048
  6. METOPROLOL. [Suspect]
     Active Substance: METOPROLOL
     Indication: HYPERTENSION
     Dosage: DAILY
     Route: 065

REACTIONS (20)
  - Sensation of foreign body [Not Recovered/Not Resolved]
  - Stress [Unknown]
  - Drug hypersensitivity [Not Recovered/Not Resolved]
  - Bladder discomfort [Unknown]
  - Viral infection [Not Recovered/Not Resolved]
  - Hypersensitivity [Unknown]
  - Nasal oedema [Not Recovered/Not Resolved]
  - Palatal oedema [Not Recovered/Not Resolved]
  - Hot flush [Unknown]
  - Chronic obstructive pulmonary disease [Unknown]
  - Urinary tract infection [Unknown]
  - Nephrolithiasis [Unknown]
  - Pharyngeal paraesthesia [Unknown]
  - Weight increased [Unknown]
  - Nasal congestion [Not Recovered/Not Resolved]
  - Sleep apnoea syndrome [Unknown]
  - Weight decreased [Unknown]
  - Dysphagia [Not Recovered/Not Resolved]
  - Lymphadenopathy [Not Recovered/Not Resolved]
  - Intentional product misuse [Unknown]

NARRATIVE: CASE EVENT DATE: 201302
